FAERS Safety Report 13736106 (Version 1)
Quarter: 2017Q3

REPORT INFORMATION
  Report Type: Spontaneous
  Country: FR (occurrence: FR)
  Receive Date: 20170710
  Receipt Date: 20170710
  Transmission Date: 20171127
  Serious: Yes (Hospitalization, Other)
  Sender: FDA-Public Use
  Company Number: PHHY2013FR022830

PATIENT
  Age: 55 Year
  Sex: Female

DRUGS (1)
  1. DESERNIL [Suspect]
     Active Substance: METHYSERGIDE MALEATE
     Indication: MIGRAINE
     Dosage: 1 DF(1.65 MG) TID
     Route: 048
     Dates: start: 2005, end: 201206

REACTIONS (4)
  - Aortic bruit [Unknown]
  - Vulval disorder [Unknown]
  - Aortic valve disease [Not Recovered/Not Resolved]
  - Aortic valve incompetence [Not Recovered/Not Resolved]

NARRATIVE: CASE EVENT DATE: 20111110
